FAERS Safety Report 24527173 (Version 2)
Quarter: 2024Q4

REPORT INFORMATION
  Report Type: Spontaneous
  Country: FR (occurrence: FR)
  Receive Date: 20241021
  Receipt Date: 20241031
  Transmission Date: 20250115
  Serious: Yes (Hospitalization, Other)
  Sender: HIKMA
  Company Number: FR-HIKMA PHARMACEUTICALS USA INC.-FR-H14001-24-09708

PATIENT
  Age: 18 Year
  Sex: Female
  Weight: 55 kg

DRUGS (31)
  1. ADCETRIS [Suspect]
     Active Substance: BRENTUXIMAB VEDOTIN
     Indication: Hodgkin^s disease nodular sclerosis stage III
     Dosage: 104.4 MILLIGRAM, CYCLICAL
     Route: 042
     Dates: start: 20240429, end: 20240625
  2. BLEOMYCIN SULFATE [Suspect]
     Active Substance: BLEOMYCIN SULFATE
     Indication: Hodgkin^s disease nodular sclerosis stage III
     Dosage: UNKNOWN
     Route: 042
     Dates: start: 20230512, end: 20230719
  3. BRENTUXIMAB [Suspect]
     Active Substance: BRENTUXIMAB
     Indication: Product used for unknown indication
     Dosage: UNKNOWN
     Route: 065
     Dates: start: 20240425
  4. DOXORUBICIN HYDROCHLORIDE [Suspect]
     Active Substance: DOXORUBICIN HYDROCHLORIDE
     Indication: Hodgkin^s disease stage III
     Dosage: 52 MILLIGRAM
     Route: 042
     Dates: start: 20230505, end: 20240216
  5. CARMUSTINE [Suspect]
     Active Substance: CARMUSTINE
     Indication: Hodgkin^s disease nodular sclerosis stage III
     Dosage: UNKNOWN
     Route: 065
  6. CARMUSTINE [Suspect]
     Active Substance: CARMUSTINE
     Dosage: UNKNOWN
     Route: 065
     Dates: start: 20240501
  7. CARMUSTINE [Suspect]
     Active Substance: CARMUSTINE
     Dosage: UNKNOWN
     Route: 065
     Dates: start: 20240719
  8. CYTARABINE [Suspect]
     Active Substance: CYTARABINE
     Indication: Hodgkin^s disease nodular sclerosis stage III
     Dosage: 3200 MILLIGRAM
     Route: 042
     Dates: start: 20240430, end: 20240626
  9. CYTARABINE [Suspect]
     Active Substance: CYTARABINE
     Dosage: UNKNOWN
     Route: 065
     Dates: start: 20240719
  10. DEXAMETHASONE [Suspect]
     Active Substance: DEXAMETHASONE
     Dosage: 40 MILLIGRAM
     Route: 048
     Dates: start: 20240429, end: 20240628
  11. DEXAMETHASONE [Suspect]
     Active Substance: DEXAMETHASONE
     Indication: Hodgkin^s disease nodular sclerosis stage III
     Dosage: UNKNOWN
     Route: 065
     Dates: start: 20240425
  12. DOXORUBICIN HYDROCHLORIDE [Suspect]
     Active Substance: DOXORUBICIN HYDROCHLORIDE
     Indication: Hodgkin^s disease nodular sclerosis stage III
     Dosage: 52 MILLIGRAM
     Route: 042
     Dates: start: 20230505, end: 20240216
  13. DOXORUBICIN HYDROCHLORIDE [Suspect]
     Active Substance: DOXORUBICIN HYDROCHLORIDE
     Dosage: UNKNOWN
     Route: 065
     Dates: start: 20240501
  14. CYCLOPHOSPHAMIDE [Suspect]
     Active Substance: CYCLOPHOSPHAMIDE
     Indication: Hodgkin^s disease nodular sclerosis stage III
     Dosage: 1800 MILLIGRAM
     Route: 042
     Dates: start: 20230505, end: 20230828
  15. ETOPOSIDE [Suspect]
     Active Substance: ETOPOSIDE
     Indication: Hodgkin^s disease nodular sclerosis stage III
     Dosage: 290 MILLIGRAM
     Route: 042
     Dates: start: 20230505, end: 20230830
  16. ETOPOSIDE [Suspect]
     Active Substance: ETOPOSIDE
     Dosage: 290MG, QQCY NOS
     Route: 042
     Dates: start: 20230505, end: 20230830
  17. ETOPOSIDE [Suspect]
     Active Substance: ETOPOSIDE
     Dosage: UNKNOWN
     Route: 065
     Dates: start: 20240719
  18. GEMCITABINE [Suspect]
     Active Substance: GEMCITABINE
     Indication: Hodgkin^s disease nodular sclerosis stage III
     Dosage: 1600 MILLIGRAM, CYCLICAL
     Route: 042
     Dates: start: 20240119, end: 20240216
  19. GEMCITABINE [Suspect]
     Active Substance: GEMCITABINE
     Dosage: UNKNOWN
     Route: 065
     Dates: start: 20240501
  20. KEYTRUDA [Suspect]
     Active Substance: PEMBROLIZUMAB
     Indication: Hodgkin^s disease nodular sclerosis stage III
     Dosage: 200 MILLIGRAM, CYCLICAL
     Route: 042
     Dates: start: 20240119, end: 20240402
  21. KEYTRUDA [Suspect]
     Active Substance: PEMBROLIZUMAB
     Dosage: UNKNOWN
     Route: 065
     Dates: start: 20240501
  22. MELPHALAN [Suspect]
     Active Substance: MELPHALAN
     Indication: Hodgkin^s disease nodular sclerosis stage III
     Dosage: UNKNOWN
     Route: 065
  23. MELPHALAN [Suspect]
     Active Substance: MELPHALAN
     Dosage: UNKNOWN
     Route: 065
     Dates: start: 20240501
  24. MELPHALAN [Suspect]
     Active Substance: MELPHALAN
     Dosage: UNKNOWN
     Route: 065
     Dates: start: 20240719
  25. NAVELBINE [Suspect]
     Active Substance: VINORELBINE TARTRATE
     Indication: Hodgkin^s disease nodular sclerosis stage III
     Dosage: 31.6 MILLIGRAM, CYCLICAL
     Route: 042
     Dates: start: 20240119, end: 20240216
  26. OXALIPLATIN [Suspect]
     Active Substance: OXALIPLATIN
     Dosage: 205 MILLIGRAM, CYCLICAL
     Route: 042
     Dates: start: 20240429, end: 20240625
  27. OXALIPLATIN [Suspect]
     Active Substance: OXALIPLATIN
     Indication: Hodgkin^s disease nodular sclerosis stage III
     Dosage: UNKNOWN
     Route: 065
     Dates: start: 20240425
  28. PREDNISONE [Suspect]
     Active Substance: PREDNISONE
     Indication: Hodgkin^s disease nodular sclerosis stage III
     Dosage: UNKNOWN
     Route: 065
  29. PROCARBAZINE [Suspect]
     Active Substance: PROCARBAZINE
     Indication: Hodgkin^s disease nodular sclerosis stage III
     Dosage: UNKNOWN
     Route: 065
  30. VINCRISTINE SULFATE [Suspect]
     Active Substance: VINCRISTINE SULFATE
     Indication: Hodgkin^s disease nodular sclerosis stage III
     Dosage: 1.3 MILLIGRAM
     Route: 042
     Dates: start: 20230512, end: 20230904
  31. VINORELBINE [Suspect]
     Active Substance: VINORELBINE TARTRATE
     Indication: Product used for unknown indication
     Dosage: UNKNOWN
     Route: 065
     Dates: start: 20240501

REACTIONS (6)
  - Condition aggravated [Unknown]
  - Cardiac failure congestive [Unknown]
  - Cardiomegaly [Unknown]
  - Pleural effusion [Unknown]
  - Liver disorder [Unknown]
  - Ascites [Unknown]

NARRATIVE: CASE EVENT DATE: 20240228
